FAERS Safety Report 25048409 (Version 1)
Quarter: 2025Q1

REPORT INFORMATION
  Report Type: Report from Study
  Country: US (occurrence: US)
  Receive Date: 20250307
  Receipt Date: 20250307
  Transmission Date: 20250409
  Serious: Yes (Other)
  Sender: ALEXION PHARMACEUTICALS
  Company Number: US-ASTRAZENECA-202502USA027040US

PATIENT

DRUGS (1)
  1. OLAPARIB [Suspect]
     Active Substance: OLAPARIB
     Indication: Fallopian tube cancer
     Dosage: 300 MILLIGRAM, BID

REACTIONS (6)
  - Renal impairment [Unknown]
  - Headache [Unknown]
  - Fatigue [Unknown]
  - Underdose [Unknown]
  - Product dose omission issue [Unknown]
  - Overdose [Unknown]
